FAERS Safety Report 9538855 (Version 1)
Quarter: 2013Q3

REPORT INFORMATION
  Report Type: Report from Study
  Country: SI (occurrence: SI)
  Receive Date: 20130920
  Receipt Date: 20130920
  Transmission Date: 20140515
  Serious: Yes (Congenital Anomaly)
  Sender: FDA-Public Use
  Company Number: SI-UCBSA-098301

PATIENT
  Sex: 0

DRUGS (1)
  1. LEVETIRACETAM [Suspect]
     Indication: EPILEPSY
     Dosage: 1500 (UNITS UNSPECIFIED)
     Route: 064

REACTIONS (2)
  - Cystic lymphangioma [Unknown]
  - Foetal exposure during pregnancy [Recovered/Resolved]
